FAERS Safety Report 4910949-9 (Version None)
Quarter: 2006Q1

REPORT INFORMATION
  Report Type: 
  Country: None (occurrence: None)
  Receive Date: 20060214
  Receipt Date: 20060106
  Transmission Date: 20060701
  Serious: Yes (Hospitalization, Other)
  Sender: FDA-Public Use
  Company Number: US-MERCK-0601USA00802

PATIENT
  Age: 62 Year
  Sex: Male
  Weight: 59 kg

DRUGS (15)
  1. VIOXX [Suspect]
     Indication: ARTHRITIS
     Route: 048
     Dates: start: 20021003, end: 20041015
  2. METOPROLOL [Concomitant]
     Route: 065
  3. BENTYL [Concomitant]
     Route: 065
  4. MAXZIDE [Concomitant]
     Route: 065
  5. ASPIRIN [Concomitant]
     Route: 065
  6. [THERAPY UNSPECIFIED] [Concomitant]
     Route: 065
  7. SINGULAIR [Concomitant]
     Route: 065
  8. CATAPRES [Concomitant]
     Route: 065
  9. BEXTRA [Concomitant]
     Route: 065
  10. NEXIUM [Concomitant]
     Route: 065
  11. [THERAPY UNSPECIFIED] [Concomitant]
     Route: 065
  12. ELAVIL [Concomitant]
     Route: 065
  13. PLAVIX [Concomitant]
     Route: 065
  14. [THERAPY UNSPECIFIED] [Concomitant]
     Route: 065
  15. CARAFATE [Concomitant]
     Route: 065

REACTIONS (5)
  - CEREBROVASCULAR ACCIDENT [None]
  - HEADACHE [None]
  - INFLUENZA [None]
  - MYOCARDIAL INFARCTION [None]
  - WART EXCISION [None]
